FAERS Safety Report 12945856 (Version 1)
Quarter: 2016Q4

REPORT INFORMATION
  Report Type: Spontaneous
  Country: RO (occurrence: RO)
  Receive Date: 20161116
  Receipt Date: 20161116
  Transmission Date: 20170207
  Serious: Yes (Hospitalization, Other)
  Sender: FDA-Public Use
  Company Number: RO-SUN PHARMACEUTICAL INDUSTRIES LTD-2016RR-127636

PATIENT
  Age: 38 Year
  Sex: Male

DRUGS (17)
  1. VALPROIC ACID. [Suspect]
     Active Substance: VALPROIC ACID
     Indication: DELUSION
     Dosage: 1000 MG, DAILY
     Route: 065
  2. QUETIAPINE. [Suspect]
     Active Substance: QUETIAPINE
     Dosage: 600 MG, DAILY
     Route: 065
  3. BROMAZEPAM [Suspect]
     Active Substance: BROMAZEPAM
     Indication: DELUSION
     Dosage: 6 MG, DAILY
     Route: 065
     Dates: start: 2012
  4. QUETIAPINE. [Suspect]
     Active Substance: QUETIAPINE
     Indication: DELUSION
     Dosage: 400 MG, DAILY
     Route: 065
     Dates: start: 2009
  5. ZOPICLONE [Suspect]
     Active Substance: ZOPICLONE
     Indication: DELUSION
     Dosage: 7.5 MG, DAILY
     Route: 065
     Dates: start: 2009
  6. SIOFOR [Concomitant]
     Active Substance: METFORMIN HYDROCHLORIDE
     Indication: INSULIN-REQUIRING TYPE 2 DIABETES MELLITUS
     Dosage: 1000 MG, BID (1-0-1)
     Route: 065
  7. DIAZEPAM. [Suspect]
     Active Substance: DIAZEPAM
     Indication: DELUSION
     Dosage: 20 MG, DAILY
     Route: 065
     Dates: start: 2007
  8. CLONAZEPAM. [Suspect]
     Active Substance: CLONAZEPAM
     Indication: DELUSION
     Dosage: 2 MG, DAILY
     Route: 065
     Dates: start: 2009
  9. AMISULPRIDE [Suspect]
     Active Substance: AMISULPRIDE
     Indication: DELUSION
     Dosage: 600 MG, DAILY
     Route: 065
     Dates: start: 2007
  10. LEVOMEPROMAZINE [Suspect]
     Active Substance: LEVOMEPROMAZINE
     Indication: DELUSION
     Dosage: 50 MG, DAILY
     Route: 065
     Dates: start: 2009
  11. RISPERIDONE. [Suspect]
     Active Substance: RISPERIDONE
     Indication: DELUSION
     Dosage: 4 ML, DAILY
     Route: 065
  12. VALPROIC ACID. [Suspect]
     Active Substance: VALPROIC ACID
     Indication: DELUSION
     Dosage: 1200 MG, DAILY
     Route: 065
     Dates: start: 2007
  13. ESCITALOPRAM [Suspect]
     Active Substance: ESCITALOPRAM OXALATE
     Indication: DELUSION
     Dosage: 10 MG, DAILY
     Route: 065
  14. METOPROLOL. [Concomitant]
     Active Substance: METOPROLOL
     Indication: ESSENTIAL HYPERTENSION
     Dosage: 50 MG, DAILY
     Route: 065
  15. QUETIAPINE. [Suspect]
     Active Substance: QUETIAPINE
     Dosage: 400 MG, DAILY
     Route: 065
  16. ZOLPIDEM [Suspect]
     Active Substance: ZOLPIDEM\ZOLPIDEM TARTRATE
     Dosage: 10 MG, DAILY
     Route: 065
  17. MIXTARD HUMAN 70/30 [Concomitant]
     Active Substance: INSULIN HUMAN
     Indication: INSULIN-REQUIRING TYPE 2 DIABETES MELLITUS
     Dosage: 100 UI/ML, 18U-0-10UI, BEFORE MEALS
     Route: 058

REACTIONS (3)
  - Tremor [Recovering/Resolving]
  - Treatment noncompliance [Recovered/Resolved]
  - Insomnia [Recovering/Resolving]

NARRATIVE: CASE EVENT DATE: 2010
